FAERS Safety Report 5105026-0 (Version None)
Quarter: 2006Q3

REPORT INFORMATION
  Report Type: 
  Country: None (occurrence: None)
  Receive Date: 20060911
  Receipt Date: 20060823
  Transmission Date: 20061208
  Serious: Yes (Other)
  Sender: FDA-Public Use
  Company Number: US200608005046

PATIENT
  Age: 51 Year
  Sex: Female

DRUGS (2)
  1. CYMBALTA [Suspect]
     Indication: BACK PAIN
     Dosage: 30 MG, DAILY (1/D), ORAL
     Route: 048
     Dates: start: 20060701
  2. NEURONTIN [Concomitant]

REACTIONS (9)
  - ARRHYTHMIA [None]
  - DRUG DOSE OMISSION [None]
  - HYPERTENSION [None]
  - INCORRECT DOSE ADMINISTERED [None]
  - STOMACH DISCOMFORT [None]
  - SUPRAVENTRICULAR EXTRASYSTOLES [None]
  - TREATMENT NONCOMPLIANCE [None]
  - VENTRICULAR EXTRASYSTOLES [None]
  - WRONG TECHNIQUE IN DRUG USAGE PROCESS [None]
